FAERS Safety Report 23773154 (Version 1)
Quarter: 2024Q2

REPORT INFORMATION
  Report Type: Spontaneous
  Country: US (occurrence: US)
  Receive Date: 20240423
  Receipt Date: 20240423
  Transmission Date: 20240716
  Serious: No
  Sender: FDA-Public Use
  Company Number: US-SANOFI-02016088

PATIENT
  Age: 65 Year

DRUGS (1)
  1. TZIELD [Suspect]
     Active Substance: TEPLIZUMAB-MZWV
     Indication: Diabetes prophylaxis
     Dosage: UNK

REACTIONS (4)
  - Hypersomnia [Unknown]
  - Lymphocyte count decreased [Unknown]
  - Fatigue [Unknown]
  - Nausea [Unknown]
